FAERS Safety Report 8361397-3 (Version None)
Quarter: 2012Q2

REPORT INFORMATION
  Report Type: 
  Country: None (occurrence: None)
  Receive Date: 20120515
  Receipt Date: 20110815
  Transmission Date: 20120825
  Serious: No
  Sender: FDA-Public Use
  Company Number: US-ALEXION-A201101246

PATIENT

DRUGS (4)
  1. KEPPRA [Concomitant]
     Dosage: UNK
  2. SOLIRIS [Suspect]
     Indication: HAEMOLYTIC URAEMIC SYNDROME
     Dosage: 1200 MG, Q2W
     Route: 042
     Dates: start: 20110601, end: 20110812
  3. PRILOSEC [Suspect]
     Dosage: UNK
  4. AMLODIPINE BESYLATE [Concomitant]
     Indication: HYPERTENSION
     Dosage: UNK

REACTIONS (4)
  - BIOPSY [None]
  - UNEVALUABLE EVENT [None]
  - NEUTROPENIA [None]
  - RENAL IMPAIRMENT [None]
